FAERS Safety Report 6734409-8 (Version None)
Quarter: 2010Q2

REPORT INFORMATION
  Report Type: 
  Country: None (occurrence: None)
  Receive Date: 20100520
  Receipt Date: 20100518
  Transmission Date: 20101027
  Serious: Yes (Hospitalization)
  Sender: FDA-Public Use
  Company Number: CHPA2010US08542

PATIENT
  Sex: Female

DRUGS (1)
  1. MAALOX UNKNOWN (NCH) [Suspect]
     Dosage: UNK, UNK
     Route: 048

REACTIONS (2)
  - COELIAC DISEASE [None]
  - CONDITION AGGRAVATED [None]
